FAERS Safety Report 14567176 (Version 6)
Quarter: 2018Q4

REPORT INFORMATION
  Report Type: Spontaneous
  Country: US (occurrence: US)
  Receive Date: 20180223
  Receipt Date: 20181002
  Transmission Date: 20190204
  Serious: No
  Sender: FDA-Public Use
  Company Number: US-PFIZER INC-2018078720

PATIENT
  Age: 64 Year
  Sex: Female
  Weight: 97 kg

DRUGS (2)
  1. IBRANCE [Suspect]
     Active Substance: PALBOCICLIB
     Indication: BREAST CANCER METASTATIC
     Dosage: 125 MG, CYCLIC (1 CAPSULE EVERY DAY ON DAYS 1-21, 28 DAYS CYCLE)
     Route: 048
     Dates: start: 20171117, end: 2018
  2. IBRANCE [Suspect]
     Active Substance: PALBOCICLIB
     Dosage: 100 MG, CYCLIC (D1-21 Q 28 DAYS)
     Route: 048
     Dates: start: 20180924

REACTIONS (9)
  - Constipation [Unknown]
  - Product dose omission [Unknown]
  - Bone pain [Not Recovered/Not Resolved]
  - Decreased appetite [Unknown]
  - Dizziness [Not Recovered/Not Resolved]
  - Anaemia [Not Recovered/Not Resolved]
  - Headache [Unknown]
  - Ear infection [Unknown]
  - White blood cell count decreased [Not Recovered/Not Resolved]
